FAERS Safety Report 5258160-9 (Version None)
Quarter: 2007Q1

REPORT INFORMATION
  Report Type: 
  Country: None (occurrence: None)
  Receive Date: 20070307
  Receipt Date: 20070223
  Transmission Date: 20070707
  Serious: Yes (Other)
  Sender: FDA-Public Use
  Company Number: US-PFIZER INC-2007016238

PATIENT
  Sex: Female
  Weight: 63.5 kg

DRUGS (4)
  1. CHANTIX [Suspect]
     Indication: EX-SMOKER
  2. SEROQUEL [Interacting]
     Indication: BIPOLAR DISORDER
  3. SEROQUEL [Interacting]
     Indication: SLEEP DISORDER
  4. NORGESTIMATE AND ETHINYL ESTRADIOL [Concomitant]

REACTIONS (5)
  - ABNORMAL DREAMS [None]
  - BIPOLAR DISORDER [None]
  - DRUG EFFECT DECREASED [None]
  - DRUG INTERACTION [None]
  - POOR QUALITY SLEEP [None]
